FAERS Safety Report 11934433 (Version 1)
Quarter: 2016Q1

REPORT INFORMATION
  Report Type: Spontaneous
  Country: US (occurrence: US)
  Receive Date: 20160121
  Receipt Date: 20160121
  Transmission Date: 20160526
  Serious: No
  Sender: FDA-Public Use
  Company Number: US-PERRIGO-15US011772

PATIENT
  Age: 66 Year

DRUGS (2)
  1. MIGRAINE FORMULA [Concomitant]
     Active Substance: ACETAMINOPHEN\ASPIRIN\CAFFEINE
     Indication: MIGRAINE
     Dosage: UNK, UNK
     Route: 065
  2. ACETAMINOPHEN-ASPIRIN-CAFFEINE 1T1 [Suspect]
     Active Substance: ACETAMINOPHEN\ASPIRIN\CAFFEINE
     Indication: MIGRAINE
     Dosage: ONE TABLET, UNKNOWN
     Route: 048
     Dates: start: 2014

REACTIONS (3)
  - No adverse event [Unknown]
  - Expired product administered [Not Recovered/Not Resolved]
  - Underdose [Not Recovered/Not Resolved]

NARRATIVE: CASE EVENT DATE: 2014
